FAERS Safety Report 4965530-2 (Version None)
Quarter: 2006Q1

REPORT INFORMATION
  Report Type: 
  Country: None (occurrence: None)
  Receive Date: 20060201
  Receipt Date: 20051207
  Transmission Date: 20060701
  Serious: No
  Sender: FDA-Public Use
  Company Number: 2005PV005571

PATIENT
  Age: 54 Year
  Sex: Female
  Weight: 95.2554 kg

DRUGS (7)
  1. BYETTA [Suspect]
     Indication: DIABETES MELLITUS NON-INSULIN-DEPENDENT
     Dosage: 5 MCG;BID;SC
     Route: 058
     Dates: start: 20051101
  2. VITAMINS [Concomitant]
  3. COD LIVER OIL [Concomitant]
  4. POTASSIUM [Concomitant]
  5. GLUCOVANCE [Concomitant]
  6. AVANDIA [Concomitant]
  7. RANITIDINE [Concomitant]

REACTIONS (9)
  - DRUG EFFECT DECREASED [None]
  - EARLY SATIETY [None]
  - ERUCTATION [None]
  - HEADACHE [None]
  - NAUSEA [None]
  - NECK PAIN [None]
  - SKIN PAPILLOMA [None]
  - STRESS [None]
  - THERAPEUTIC RESPONSE UNEXPECTED [None]
